FAERS Safety Report 6236563-3 (Version None)
Quarter: 2009Q2

REPORT INFORMATION
  Report Type: 
  Country: None (occurrence: None)
  Receive Date: 20090619
  Receipt Date: 20090615
  Transmission Date: 20091009
  Serious: Yes (Other)
  Sender: FDA-Public Use
  Company Number: US-ASTRAZENECA-2009UW15264

PATIENT
  Age: 80 Year
  Sex: Female
  Weight: 68 kg

DRUGS (5)
  1. ARIMIDEX [Suspect]
     Indication: BREAST CANCER
     Route: 048
     Dates: start: 20080101
  2. ACTONEL [Concomitant]
  3. VITAMIN [Concomitant]
  4. ASPIRIN [Concomitant]
     Dosage: HALF OF AN ASPIRIN
  5. BLOOD PRESSURE MEDICATION [Concomitant]

REACTIONS (11)
  - ABDOMINAL DISTENSION [None]
  - ARTHRITIS [None]
  - ASTHENIA [None]
  - BONE DENSITY DECREASED [None]
  - DEPRESSION [None]
  - HEADACHE [None]
  - HOT FLUSH [None]
  - MOOD SWINGS [None]
  - OEDEMA PERIPHERAL [None]
  - OSTEOPOROSIS [None]
  - PAIN [None]
